FAERS Safety Report 8106665-5 (Version None)
Quarter: 2012Q1

REPORT INFORMATION
  Report Type: 
  Country: None (occurrence: None)
  Receive Date: 20120130
  Receipt Date: 20120116
  Transmission Date: 20120608
  Serious: Yes (Other)
  Sender: FDA-Public Use
  Company Number: PHHY2012TW004101

PATIENT
  Sex: Female

DRUGS (1)
  1. VISUDYNE [Suspect]
     Indication: MACULAR DEGENERATION
     Dates: start: 20120111

REACTIONS (1)
  - EYE SWELLING [None]
